FAERS Safety Report 4691875-X (Version None)
Quarter: 2005Q2

REPORT INFORMATION
  Report Type: 
  Country: None (occurrence: None)
  Receive Date: 20050616
  Receipt Date: 20050616
  Transmission Date: 20051028
  Serious: Yes (Other)
  Sender: FDA-Public Use
  Company Number: None

PATIENT
  Sex: Male
  Weight: 86 kg

DRUGS (1)
  1. CISPLATIN [Suspect]
     Indication: NEOPLASM MALIGNANT
     Dosage: 835 MG TOTAL DOSE GIVEN IV Q3WEEKS X DOSES
     Route: 042
     Dates: start: 20050602

REACTIONS (7)
  - BLOOD PRESSURE SYSTOLIC INCREASED [None]
  - BODY TEMPERATURE INCREASED [None]
  - DYSPNOEA [None]
  - EFFUSION [None]
  - HEART RATE INCREASED [None]
  - LUNG CONSOLIDATION [None]
  - OXYGEN SATURATION DECREASED [None]
